FAERS Safety Report 9461193 (Version 1)
Quarter: 2013Q3

REPORT INFORMATION
  Report Type: Spontaneous
  Country: US (occurrence: None)
  Receive Date: 20130814
  Receipt Date: 20130814
  Transmission Date: 20140515
  Serious: No
  Sender: FDA-Public Use
  Company Number: None

PATIENT
  Age: 45 Year
  Sex: Female
  Weight: 96.5 kg

DRUGS (1)
  1. OXYCODONE [Suspect]
     Dosage: 120 1-2T PO Q4H PRN PO
     Route: 048
     Dates: start: 20130715, end: 20130724

REACTIONS (6)
  - Gastrointestinal disorder [None]
  - Muscle spasms [None]
  - Discomfort [None]
  - Nausea [None]
  - Malaise [None]
  - Product substitution issue [None]
